FAERS Safety Report 4824524-8 (Version None)
Quarter: 2005Q4

REPORT INFORMATION
  Report Type: 
  Country: None (occurrence: None)
  Receive Date: 20051108
  Receipt Date: 20051025
  Transmission Date: 20060501
  Serious: Yes (Disabling)
  Sender: FDA-Public Use
  Company Number: GBS051018702

PATIENT
  Age: 60 Year
  Sex: Female

DRUGS (11)
  1. FORTEO [Suspect]
     Indication: OSTEOPOROSIS
     Dosage: 20 UG DAY
     Dates: start: 20050923, end: 20051003
  2. CIPROFLOXACIN [Concomitant]
  3. BENDROFLUMETHIAZIDE [Concomitant]
  4. ASPIRIN [Concomitant]
  5. ALENDRONIC ACID [Concomitant]
  6. PREDNISOLONE [Concomitant]
  7. FLIXOTIDE (FLUTICASONE PROPIONATE) [Concomitant]
  8. SANDO K (POTASSIUM CHLORIDE) [Concomitant]
  9. VENTOLIN INHALER (SALBUTAMOL) [Concomitant]
  10. VENTOLIN INHALER (SALBUTAMOL) [Concomitant]
  11. VENTOLIN /SCH/ (SALBUTAMOL SULFATE) [Concomitant]

REACTIONS (5)
  - BRONCHOSPASM [None]
  - FATIGUE [None]
  - HEADACHE [None]
  - LETHARGY [None]
  - PAIN IN EXTREMITY [None]
